FAERS Safety Report 6469265-9 (Version None)
Quarter: 2009Q4

REPORT INFORMATION
  Report Type: 
  Country: None (occurrence: None)
  Receive Date: 20091203
  Receipt Date: 20081014
  Transmission Date: 20100525
  Serious: Yes (Hospitalization, Other)
  Sender: FDA-Public Use
  Company Number: US-ELI_LILLY_AND_COMPANY-US200708002840

PATIENT
  Sex: Female

DRUGS (1)
  1. FORTEO [Suspect]
     Dosage: UNK, UNK
     Dates: start: 20050701, end: 20061101

REACTIONS (7)
  - AGGRESSION [None]
  - DISORIENTATION [None]
  - FALL [None]
  - GAIT DISTURBANCE [None]
  - HIP FRACTURE [None]
  - MEMORY IMPAIRMENT [None]
  - SEPSIS [None]
